FAERS Safety Report 6622787-X (Version None)
Quarter: 2010Q1

REPORT INFORMATION
  Report Type: 
  Country: None (occurrence: None)
  Receive Date: 20100304
  Receipt Date: 20100225
  Transmission Date: 20100710
  Serious: Yes (Death, Hospitalization)
  Sender: FDA-Public Use
  Company Number: 2009JP005739

PATIENT
  Age: 34 Year
  Sex: Female
  Weight: 41.2 kg

DRUGS (19)
  1. TACROLIMUS [Suspect]
     Indication: LUPUS NEPHRITIS
     Dosage: 3 MG,  /D, ORAL
     Route: 048
     Dates: start: 20071102, end: 20071218
  2. TACROLIMUS [Suspect]
     Indication: LUPUS NEPHRITIS
     Dosage: 3 MG,  /D, ORAL
     Route: 048
     Dates: start: 20080107, end: 20090712
  3. PREDNISOLONE [Suspect]
     Indication: LUPUS NEPHRITIS
     Dosage: SEE IMAGE
     Route: 048
     Dates: start: 20071006, end: 20071011
  4. PREDNISOLONE [Suspect]
     Indication: LUPUS NEPHRITIS
     Dosage: SEE IMAGE
     Route: 048
     Dates: start: 20071012, end: 20071108
  5. PREDNISOLONE [Suspect]
     Indication: LUPUS NEPHRITIS
     Dosage: SEE IMAGE
     Route: 048
     Dates: start: 20071109, end: 20071115
  6. PREDNISOLONE [Suspect]
     Indication: LUPUS NEPHRITIS
     Dosage: SEE IMAGE
     Route: 048
     Dates: start: 20071116, end: 20071122
  7. PREDNISOLONE [Suspect]
     Indication: LUPUS NEPHRITIS
     Dosage: SEE IMAGE
     Route: 048
     Dates: start: 20071123, end: 20071206
  8. PREDNISOLONE [Suspect]
     Indication: LUPUS NEPHRITIS
     Dosage: SEE IMAGE
     Route: 048
     Dates: start: 20071102, end: 20071218
  9. PREDNISOLONE [Suspect]
     Indication: LUPUS NEPHRITIS
     Dosage: SEE IMAGE
     Route: 048
     Dates: start: 20071207, end: 20071231
  10. PREDNISOLONE [Suspect]
     Indication: LUPUS NEPHRITIS
     Dosage: SEE IMAGE
     Route: 048
     Dates: start: 20080101, end: 20080106
  11. PREDNISOLONE [Suspect]
     Indication: LUPUS NEPHRITIS
     Dosage: SEE IMAGE
     Route: 048
     Dates: start: 20080107, end: 20080210
  12. PREDNISOLONE [Suspect]
     Indication: LUPUS NEPHRITIS
     Dosage: SEE IMAGE
     Route: 048
     Dates: start: 20080211, end: 20080224
  13. PREDNISOLONE [Suspect]
     Indication: LUPUS NEPHRITIS
     Dosage: SEE IMAGE
     Route: 048
     Dates: start: 20080225, end: 20080331
  14. PREDNISOLONE [Suspect]
     Indication: LUPUS NEPHRITIS
     Dosage: SEE IMAGE
     Route: 048
     Dates: start: 20080401, end: 20080623
  15. CANDESARTAN CILEXETIL [Concomitant]
  16. PROTECADIN (LAFUTIDINE) [Concomitant]
  17. PERSANTIN [Concomitant]
  18. VALTREX [Concomitant]
  19. VIDARABINE [Concomitant]

REACTIONS (2)
  - HERPES ZOSTER [None]
  - LARGE CELL CARCINOMA OF THE RESPIRATORY TRACT STAGE UNSPECIFIED [None]
